FAERS Safety Report 6025761-X (Version None)
Quarter: 2008Q4

REPORT INFORMATION
  Report Type: 
  Country: None (occurrence: None)
  Receive Date: 20081224
  Receipt Date: 20081210
  Transmission Date: 20090506
  Serious: Yes (Hospitalization)
  Sender: FDA-Public Use
  Company Number: KV200801080

PATIENT
  Age: 90 Year
  Sex: Female
  Weight: 59 kg

DRUGS (7)
  1. ISOSORBIDE MONONITRATE [Suspect]
     Indication: CHEST PAIN
     Dosage: 30 MG, QD, ORAL
     Route: 048
     Dates: start: 20080501
  2. OMEPRAZOLE [Concomitant]
  3. FURAMIDE (DILOXANIDE FUROATE) [Concomitant]
  4. SYNTHROID [Concomitant]
  5. PREDNISONE [Concomitant]
  6. SPIRONOLACTONE [Concomitant]
  7. CLARITIN /00917501/ (LORATADINE) [Concomitant]

REACTIONS (6)
  - FALL [None]
  - JOINT INJURY [None]
  - LOSS OF CONSCIOUSNESS [None]
  - MEMORY IMPAIRMENT [None]
  - PRODUCT QUALITY ISSUE [None]
  - WRIST FRACTURE [None]
